FAERS Safety Report 16552611 (Version 3)
Quarter: 2020Q1

REPORT INFORMATION
  Report Type: Spontaneous
  Country: US (occurrence: US)
  Receive Date: 20190710
  Receipt Date: 20200330
  Transmission Date: 20200409
  Serious: No
  Sender: FDA-Public Use
  Company Number: US-PFIZER INC-2019294050

PATIENT
  Age: 44 Year
  Sex: Female
  Weight: 115.46 kg

DRUGS (4)
  1. VENLAFAXINE HCL [Suspect]
     Active Substance: VENLAFAXINE HYDROCHLORIDE
     Indication: MAJOR DEPRESSION
  2. VENLAFAXINE HCL [Suspect]
     Active Substance: VENLAFAXINE HYDROCHLORIDE
     Indication: DEPRESSION
     Dosage: UNK
  3. EFFEXOR XR [Suspect]
     Active Substance: VENLAFAXINE HYDROCHLORIDE
     Indication: DEPRESSION
     Dosage: 150 MG, 1X/DAY [1 Q DAY / DAILY WITH FOOD]
     Route: 048
  4. EFFEXOR XR [Suspect]
     Active Substance: VENLAFAXINE HYDROCHLORIDE
     Indication: MAJOR DEPRESSION

REACTIONS (8)
  - Withdrawal syndrome [Unknown]
  - Therapeutic product effect incomplete [Unknown]
  - Myalgia [Unknown]
  - Abnormal dreams [Unknown]
  - Influenza like illness [Unknown]
  - Headache [Unknown]
  - Arthralgia [Unknown]
  - Anxiety [Unknown]
